FAERS Safety Report 8162676 (Version 3)
Quarter: 2013Q1

REPORT INFORMATION
  Report Type: Spontaneous
  Country: US (occurrence: US)
  Receive Date: 20110929
  Receipt Date: 20130104
  Transmission Date: 20140127
  Serious: Yes (Other)
  Sender: FDA-Public Use
  Company Number: US-ASTRAZENECA-2011SE56852

PATIENT
  Age: 76 Year
  Sex: Male

DRUGS (4)
  1. RHINOCORT AQUA [Suspect]
     Dosage: ONE SPRAY PER NOSTRIL DAILY
     Route: 045
  2. NEXIUM [Suspect]
     Route: 048
  3. TOPROL XL [Suspect]
     Route: 048
  4. CRESTOR [Suspect]
     Route: 048

REACTIONS (6)
  - Exostosis [Unknown]
  - Poor peripheral circulation [Unknown]
  - Malaise [Unknown]
  - Cardiac disorder [Unknown]
  - Intentional drug misuse [Unknown]
  - Drug ineffective [Unknown]
